FAERS Safety Report 14870461 (Version 1)
Quarter: 2018Q2

REPORT INFORMATION
  Report Type: Spontaneous
  Country: JP (occurrence: JP)
  Receive Date: 20180509
  Receipt Date: 20180509
  Transmission Date: 20180711
  Serious: Yes (Other)
  Sender: FDA-Public Use
  Company Number: JP-PFIZER INC-2018180322

PATIENT
  Age: 65 Year
  Sex: Male

DRUGS (4)
  1. TRAMAL [Suspect]
     Active Substance: TRAMADOL
     Dosage: 300 MG, UNK
  2. TRAMCET [Suspect]
     Active Substance: ACETAMINOPHEN\TRAMADOL
     Dosage: UNK
     Route: 048
  3. LYRICA [Suspect]
     Active Substance: PREGABALIN
     Dosage: UNK
     Route: 048
  4. TRAMAL [Suspect]
     Active Substance: TRAMADOL
     Indication: PAIN
     Dosage: UNK UNK, 4X/DAY
     Route: 048

REACTIONS (16)
  - Cerebellar infarction [Unknown]
  - Tumour marker increased [Unknown]
  - Asthenia [Unknown]
  - Nasal pruritus [Unknown]
  - Nausea [Unknown]
  - Monoplegia [Unknown]
  - Dysarthria [Unknown]
  - Malaise [Unknown]
  - Hypersensitivity [Unknown]
  - Cough [Unknown]
  - Constipation [Unknown]
  - Gait inability [Unknown]
  - Dysstasia [Unknown]
  - Sneezing [Unknown]
  - Dizziness [Unknown]
  - Rash [Unknown]
